FAERS Safety Report 19123293 (Version 1)
Quarter: 2021Q2

REPORT INFORMATION
  Report Type: Spontaneous
  Country: FR (occurrence: FR)
  Receive Date: 20210412
  Receipt Date: 20210412
  Transmission Date: 20210717
  Serious: Yes (Life-Threatening, Other)
  Sender: FDA-Public Use
  Company Number: FR-PFIZER INC-2021364488

PATIENT
  Age: 32 Year
  Sex: Male

DRUGS (5)
  1. TERCIAN [CYAMEMAZINE TARTRATE] [Suspect]
     Active Substance: CYAMEMAZINE
     Indication: DISSOCIATIVE DISORDER
     Dosage: 100 MG, 1X/DAY
     Route: 048
     Dates: start: 2016
  2. BROMAZEPAM [Suspect]
     Active Substance: BROMAZEPAM
     Indication: ANXIETY
     Dosage: 1.5 MG, 1X/DAY
     Route: 048
     Dates: start: 2017
  3. CLOZAPINE. [Suspect]
     Active Substance: CLOZAPINE
     Indication: DISSOCIATIVE DISORDER
     Dosage: 425 MG, 1X/DAY
     Route: 048
     Dates: start: 2018, end: 202011
  4. CIRCADIN [Suspect]
     Active Substance: MELATONIN
     Indication: INSOMNIA
     Dosage: UNK
     Route: 048
     Dates: start: 2020
  5. PANTOPRAZOLE [Suspect]
     Active Substance: PANTOPRAZOLE
     Dosage: 20 MG, 1X/DAY
     Route: 048
     Dates: start: 2018

REACTIONS (2)
  - Faecaloma [Recovered/Resolved with Sequelae]
  - Gastrointestinal necrosis [Recovered/Resolved with Sequelae]

NARRATIVE: CASE EVENT DATE: 20201129
